FAERS Safety Report 7501519-7 (Version None)
Quarter: 2011Q2

REPORT INFORMATION
  Report Type: 
  Country: None (occurrence: None)
  Receive Date: 20110524
  Receipt Date: 20110512
  Transmission Date: 20111010
  Serious: Yes (Other)
  Sender: FDA-Public Use
  Company Number: PHHY2009DE14824

PATIENT
  Sex: Female

DRUGS (9)
  1. THYM-UVOCAL [Concomitant]
     Dosage: 2X2 ML WEEKLY
     Dates: start: 20040805
  2. MUCOZYM [Concomitant]
     Dosage: UNK
     Dates: start: 20040805
  3. VITAMINE D3 [Concomitant]
     Dosage: 500 MG
     Dates: start: 20060329
  4. FEMARA [Suspect]
     Indication: BREAST CANCER
     Dosage: 2.5 MG, QD
     Route: 048
     Dates: start: 20060329, end: 20080301
  5. AROMASIN [Concomitant]
  6. CEFASEL [Concomitant]
     Dosage: 300 UG
     Dates: start: 20040805
  7. CALCIUM CARBONATE [Concomitant]
     Dosage: 500 MG
     Dates: start: 20060329
  8. LEKTINOL [Concomitant]
     Dosage: 2X1 AMP WEEKLY
     Dates: start: 20040805
  9. BISPHOSPHONATES [Concomitant]
     Dosage: 50 MG
     Dates: start: 20060329

REACTIONS (4)
  - DEPRESSION [None]
  - HEADACHE [None]
  - TUMOUR MARKER INCREASED [None]
  - SLEEP DISORDER [None]
